FAERS Safety Report 25471130 (Version 1)
Quarter: 2025Q2

REPORT INFORMATION
  Report Type: Spontaneous
  Country: CA (occurrence: CA)
  Receive Date: 20250624
  Receipt Date: 20250624
  Transmission Date: 20250717
  Serious: Yes (Hospitalization, Other)
  Sender: TEVA
  Company Number: CA-TEVA-VS-3343128

PATIENT
  Age: 27 Year
  Sex: Male

DRUGS (3)
  1. FENTANYL [Suspect]
     Active Substance: FENTANYL
     Indication: Product used for unknown indication
     Route: 065
  2. FENTANYL [Suspect]
     Active Substance: FENTANYL
     Indication: Product used for unknown indication
     Route: 065
  3. EPCLUSA [Suspect]
     Active Substance: SOFOSBUVIR\VELPATASVIR
     Indication: Hepatitis C
     Route: 065

REACTIONS (6)
  - Liver injury [Recovered/Resolved]
  - Pneumonia aspiration [Recovered/Resolved]
  - Anaemia [Recovered/Resolved]
  - Hypoperfusion [Recovered/Resolved]
  - Accidental overdose [Recovered/Resolved]
  - Chest pain [Recovered/Resolved]
